FAERS Safety Report 5826803-4 (Version None)
Quarter: 2008Q3

REPORT INFORMATION
  Report Type: 
  Country: None (occurrence: None)
  Receive Date: 20080728
  Receipt Date: 20080728
  Transmission Date: 20090109
  Serious: Yes (Death)
  Sender: FDA-Public Use
  Company Number: None

PATIENT
  Age: 68 Year
  Sex: Female
  Weight: 72.5755 kg

DRUGS (1)
  1. CELEBREX [Suspect]
     Indication: MUSCULOSKELETAL STIFFNESS
     Dosage: 200 MG PER DAY PO
     Route: 048
     Dates: start: 20070524, end: 20070606

REACTIONS (2)
  - CARDIAC ARREST [None]
  - FALL [None]
